FAERS Safety Report 12497247 (Version 2)
Quarter: 2016Q3

REPORT INFORMATION
  Report Type: Spontaneous
  Country: NG (occurrence: NG)
  Receive Date: 20160624
  Receipt Date: 20160718
  Transmission Date: 20161109
  Serious: Yes (Other)
  Sender: FDA-Public Use
  Company Number: NG-BAYER-2016-119626

PATIENT
  Age: 73 Year
  Sex: Male

DRUGS (1)
  1. ALEVE [Suspect]
     Active Substance: NAPROXEN SODIUM
     Dosage: 2 DF, BID
     Dates: start: 2016

REACTIONS (4)
  - Haematemesis [Recovered/Resolved]
  - Product use issue [None]
  - Product use issue [None]
  - Haematocrit decreased [None]

NARRATIVE: CASE EVENT DATE: 2016
